FAERS Safety Report 4752000-X (Version None)
Quarter: 2005Q3

REPORT INFORMATION
  Report Type: 
  Country: None (occurrence: None)
  Receive Date: 20050824
  Receipt Date: 20050314
  Transmission Date: 20060218
  Serious: Yes (Hospitalization, Other)
  Sender: FDA-Public Use
  Company Number: US-MERCK-0503USA02886

PATIENT
  Age: 60 Year
  Sex: Male
  Weight: 118 kg

DRUGS (18)
  1. VIOXX [Suspect]
     Indication: SHOULDER PAIN
     Route: 048
     Dates: start: 20001207, end: 20040901
  2. VIOXX [Suspect]
     Route: 048
     Dates: start: 20001207, end: 20040901
  3. COREG [Concomitant]
     Indication: HYPERTENSION
     Route: 065
     Dates: start: 19930101
  4. PLETAL [Concomitant]
     Indication: ANTICOAGULANT THERAPY
     Route: 065
     Dates: start: 19950101
  5. PLAVIX [Concomitant]
     Indication: ANTICOAGULANT THERAPY
     Route: 065
     Dates: start: 20000101
  6. ZOCOR [Concomitant]
     Indication: BLOOD CHOLESTEROL INCREASED
     Route: 065
     Dates: start: 20000101
  7. DEMADEX [Concomitant]
     Indication: POLYURIA
     Route: 065
     Dates: start: 19950101
  8. METAGLIP [Concomitant]
     Indication: DIABETES MELLITUS
     Route: 065
     Dates: start: 19950101
  9. FLOVENT [Concomitant]
     Indication: ASTHMA
     Route: 065
  10. ALBUTEROL [Concomitant]
     Indication: ASTHMA
     Route: 055
  11. NITROSTAT [Concomitant]
     Indication: ANGINA PECTORIS
     Route: 065
     Dates: start: 19920101
  12. LIPITOR [Concomitant]
     Indication: BLOOD CHOLESTEROL INCREASED
     Route: 065
     Dates: start: 19930101
  13. COUMADIN [Concomitant]
     Indication: THROMBOSIS PROPHYLAXIS
     Route: 065
     Dates: start: 20030101
  14. LOVENOX [Concomitant]
     Indication: ANTICOAGULANT THERAPY
     Route: 065
     Dates: start: 20020101
  15. PROPOXYPHENE HYDROCHLORIDE [Concomitant]
     Indication: PAIN
     Route: 065
     Dates: start: 20000101, end: 20020101
  16. DIAZEPAM [Concomitant]
     Indication: NERVOUSNESS
     Route: 065
  17. LEVAQUIN [Concomitant]
     Indication: ANTICOAGULANT THERAPY
     Route: 065
  18. K-DUR 10 [Concomitant]
     Indication: MINERAL SUPPLEMENTATION
     Route: 065

REACTIONS (10)
  - ANGINA PECTORIS [None]
  - ANXIETY [None]
  - CARDIAC MURMUR [None]
  - CHEST PAIN [None]
  - CORONARY ARTERY DISEASE [None]
  - GASTROOESOPHAGEAL REFLUX DISEASE [None]
  - HEART SOUNDS ABNORMAL [None]
  - MYOCARDIAL INFARCTION [None]
  - PULMONARY EMBOLISM [None]
  - THROMBOSIS [None]
